FAERS Safety Report 10019600 (Version 1)
Quarter: 2014Q1

REPORT INFORMATION
  Report Type: Spontaneous
  Country: US (occurrence: US)
  Receive Date: 20140318
  Receipt Date: 20140318
  Transmission Date: 20141002
  Serious: Yes (Other)
  Sender: FDA-Public Use
  Company Number: US-PFIZER INC-2014076498

PATIENT
  Sex: Female

DRUGS (4)
  1. ADVIL [Suspect]
     Indication: PAIN
     Dosage: 10 DF, DAILY OFF AND ON FOR 3 MONTHS.
  2. TYLENOL [Suspect]
     Indication: PAIN
     Dosage: 6 DF, UNK
  3. PROZAC [Concomitant]
     Dosage: IN THE DAY
  4. AMBIEN [Concomitant]
     Dosage: AT NIGHT

REACTIONS (5)
  - Diverticulitis [Unknown]
  - Haemorrhoids [Unknown]
  - Overdose [Unknown]
  - Faeces discoloured [Unknown]
  - Abdominal pain upper [Unknown]
